FAERS Safety Report 20128886 (Version 1)
Quarter: 2021Q4

REPORT INFORMATION
  Report Type: Spontaneous
  Country: CN (occurrence: CN)
  Receive Date: 20211130
  Receipt Date: 20211130
  Transmission Date: 20220303
  Serious: Yes (Other)
  Sender: FDA-Public Use
  Company Number: CN-LOTUS-2021-LOTUS-048364

PATIENT
  Age: 10 Year
  Sex: Female

DRUGS (4)
  1. METHOTREXATE [Suspect]
     Active Substance: METHOTREXATE
     Indication: Blau syndrome
  2. PREDNISOLONE [Suspect]
     Active Substance: PREDNISOLONE
     Indication: Blau syndrome
  3. ETANERCEPT [Suspect]
     Active Substance: ETANERCEPT
     Indication: Blau syndrome
  4. INFLIXIMAB [Suspect]
     Active Substance: INFLIXIMAB
     Indication: Blau syndrome

REACTIONS (3)
  - Disease progression [Unknown]
  - Hypertension [Recovered/Resolved]
  - Growth retardation [Recovered/Resolved]
